FAERS Safety Report 10185406 (Version 1)
Quarter: 2014Q2

REPORT INFORMATION
  Report Type: Spontaneous
  Country: US (occurrence: None)
  Receive Date: 20140520
  Receipt Date: 20140520
  Transmission Date: 20141212
  Serious: Yes (Hospitalization)
  Sender: FDA-Public Use
  Company Number: None

PATIENT
  Age: 45 Year
  Sex: Male

DRUGS (18)
  1. TOBRAMYCIN [Suspect]
     Indication: INFECTION
     Dosage: VARIED DOSE.
     Route: 042
     Dates: start: 20121102, end: 20121104
  2. ACETAMINOPHEN [Concomitant]
  3. CEFEPIME [Concomitant]
  4. CHLORHEXADINE [Concomitant]
  5. CLONIDINE [Concomitant]
  6. FAMOTIDINE [Concomitant]
  7. FENTANYL [Concomitant]
  8. FUROSEMIDE [Concomitant]
  9. HYDRALAZINE [Concomitant]
  10. INSULIN ASPART [Concomitant]
  11. LABETALOL [Concomitant]
  12. POTASSIUM CHLORIDE [Concomitant]
  13. PAYLLIUM [Concomitant]
  14. VANCOMYCIN [Concomitant]
  15. VACURONIUM [Concomitant]
  16. HEPARIN [Concomitant]
  17. HYDROMORPHONE [Concomitant]
  18. PROPOFOL [Concomitant]

REACTIONS (2)
  - Tubulointerstitial nephritis [None]
  - Continuous haemodiafiltration [None]
